FAERS Safety Report 9977745 (Version 2)
Quarter: 2014Q1

REPORT INFORMATION
  Report Type: Report from Study
  Country: US (occurrence: US)
  Receive Date: 20140306
  Receipt Date: 20140306
  Transmission Date: 20141002
  Serious: No
  Sender: FDA-Public Use
  Company Number: US-ABBVIE-13P-163-1151949-00

PATIENT
  Age: 37 Year
  Sex: Male

DRUGS (3)
  1. HUMIRA [Suspect]
     Indication: PSORIATIC ARTHROPATHY
     Route: 058
     Dates: start: 20130730, end: 201309
  2. CELEBREX [Concomitant]
     Indication: PSORIATIC ARTHROPATHY
  3. CELEBREX [Concomitant]
     Indication: INFLAMMATION

REACTIONS (3)
  - Sinus headache [Not Recovered/Not Resolved]
  - Sinus headache [Not Recovered/Not Resolved]
  - Oropharyngeal pain [Not Recovered/Not Resolved]
